FAERS Safety Report 4379079-1 (Version None)
Quarter: 2004Q2

REPORT INFORMATION
  Report Type: 
  Country: None (occurrence: None)
  Receive Date: 20040610
  Receipt Date: 20040528
  Transmission Date: 20050107
  Serious: Yes (Other)
  Sender: FDA-Public Use
  Company Number: 2004036529

PATIENT
  Age: 39 Year
  Sex: Male

DRUGS (1)
  1. FELDENE [Suspect]
     Indication: BACK PAIN
     Dosage: 20 MG (20 MG, 1 IN 1 D), ORAL
     Route: 048
     Dates: start: 20040515, end: 20040527

REACTIONS (7)
  - BODY TEMPERATURE INCREASED [None]
  - DERMATITIS BULLOUS [None]
  - FACE OEDEMA [None]
  - OEDEMA PERIPHERAL [None]
  - PAIN [None]
  - PRURITUS [None]
  - WOUND COMPLICATION [None]
